FAERS Safety Report 5750458-0 (Version None)
Quarter: 2008Q2

REPORT INFORMATION
  Report Type: 
  Country: None (occurrence: None)
  Receive Date: 20080528
  Receipt Date: 20080118
  Transmission Date: 20081010
  Serious: No
  Sender: FDA-Public Use
  Company Number: US-KINGPHARMUSA00001-K200800069

PATIENT

DRUGS (9)
  1. AVINZA [Suspect]
     Indication: PAIN
     Dosage: 50 MG, EVERY 12 HOURS
     Route: 048
     Dates: start: 20050101
  2. AVINZA [Suspect]
     Dosage: 60 MG, EVERY 12 HOURS
     Route: 048
     Dates: end: 20080101
  3. AVINZA [Suspect]
     Dosage: 90 MG, EVERY 12 HOURS
     Route: 048
     Dates: start: 20080101, end: 20080115
  4. SOMA [Concomitant]
     Indication: MUSCLE SPASMS
     Dosage: 30 MG, FIVE TIMES DAILY, PRN
  5. NORCO [Concomitant]
     Indication: PAIN
     Dosage: FOUR TIMES DAILY
  6. ZOLOFT [Concomitant]
     Dates: end: 20070101
  7. TOPAMAX [Concomitant]
     Indication: MIGRAINE
  8. INHALERS [Concomitant]
     Indication: CHRONIC OBSTRUCTIVE PULMONARY DISEASE
  9. INHALERS [Concomitant]
     Indication: ASTHMA

REACTIONS (5)
  - BREAKTHROUGH PAIN [None]
  - DRUG INTOLERANCE [None]
  - DYSPNOEA [None]
  - INSOMNIA [None]
  - PALPITATIONS [None]
